FAERS Safety Report 8001986-9 (Version None)
Quarter: 2011Q4

REPORT INFORMATION
  Report Type: 
  Country: None (occurrence: None)
  Receive Date: 20111220
  Receipt Date: 20111209
  Transmission Date: 20120403
  Serious: Yes (Hospitalization)
  Sender: FDA-Public Use
  Company Number: 2011SGN00350

PATIENT
  Age: 50 Year
  Sex: Female
  Weight: 56.4 kg

DRUGS (4)
  1. CYCLOPHOSPHAMIDE [Suspect]
     Indication: T-CELL LYMPHOMA
     Dosage: 750 MG/M2, QD21, INTRAVENOUS
     Route: 042
     Dates: start: 20111101, end: 20111122
  2. DOXORUBICIN HCL [Suspect]
     Indication: T-CELL LYMPHOMA
     Dosage: 50 MG/M2, Q21D, INTRAVENOUS
     Route: 042
     Dates: start: 20111101, end: 20111122
  3. BRENTUXIMAB VEDOTIN (BRENTUXIMAB VEDOTIN) INJECTION [Suspect]
     Indication: T-CELL LYMPHOMA
     Dosage: 1.8 MG/KG, Q21D, INTRAVENOUS
     Route: 042
     Dates: start: 20111101, end: 20111122
  4. PREDNISONE TAB [Suspect]
     Indication: T-CELL LYMPHOMA
     Dosage: 100 MG, Q21D, ORAL
     Route: 048
     Dates: start: 20111101, end: 20111122

REACTIONS (2)
  - RASH PUSTULAR [None]
  - FEBRILE NEUTROPENIA [None]
